FAERS Safety Report 6516876-8 (Version None)
Quarter: 2009Q4

REPORT INFORMATION
  Report Type: 
  Country: None (occurrence: None)
  Receive Date: 20091223
  Receipt Date: 20091216
  Transmission Date: 20100525
  Serious: Yes (Other)
  Sender: FDA-Public Use
  Company Number: FR-JNJCH-2009032623

PATIENT
  Sex: Female

DRUGS (4)
  1. ALOSTIL 5% [Suspect]
     Indication: ALOPECIA
     Dosage: DAILY DOSE:1ML-TEXT:1 ML/EVENING (6 TIMES PRESSING PUMP SPRA
     Route: 061
     Dates: start: 20091102, end: 20091203
  2. AVLOCARDYL [Concomitant]
     Indication: PALPITATIONS
     Dosage: TEXT:1/2 TABLET PER DAY
     Route: 048
  3. TANAKAN [Concomitant]
     Indication: DEMENTIA ALZHEIMER'S TYPE
     Dosage: TEXT:UNSPECIFIED
     Route: 065
  4. CHONDROSULF [Concomitant]
     Indication: OSTEOARTHRITIS
     Dosage: TEXT:3 DF DAILY
     Route: 048

REACTIONS (6)
  - HYPOTENSION [None]
  - LACRIMATION INCREASED [None]
  - OFF LABEL USE [None]
  - PRESYNCOPE [None]
  - RHINORRHOEA [None]
  - SCOTOMA [None]
